FAERS Safety Report 16891044 (Version 1)
Quarter: 2019Q4

REPORT INFORMATION
  Report Type: Spontaneous
  Country: US (occurrence: US)
  Receive Date: 20191006
  Receipt Date: 20191006
  Transmission Date: 20200122
  Serious: No
  Sender: FDA-Public Use
  Company Number: None

PATIENT
  Age: 18 Year
  Sex: Female
  Weight: 51.75 kg

DRUGS (2)
  1. NITROFURANTOIN 100MG, SUBSTITUTED FOR MACROBID 100MG [Suspect]
     Active Substance: NITROFURANTOIN\NITROFURANTOIN MONOHYDRATE
     Indication: URINARY TRACT INFECTION
     Dosage: ?          QUANTITY:14 CAPSULE(S);?
     Route: 048
     Dates: start: 20190930, end: 20191005
  2. NEXPLANON [Concomitant]
     Active Substance: ETONOGESTREL

REACTIONS (6)
  - Epistaxis [None]
  - Lethargy [None]
  - Dry throat [None]
  - Nasal dryness [None]
  - Thrombosis [None]
  - Fatigue [None]

NARRATIVE: CASE EVENT DATE: 20191005
